FAERS Safety Report 22634603 (Version 1)
Quarter: 2023Q2

REPORT INFORMATION
  Report Type: Spontaneous
  Country: CA (occurrence: CA)
  Receive Date: 20230623
  Receipt Date: 20230623
  Transmission Date: 20230721
  Serious: Yes (Other)
  Sender: FDA-Public Use
  Company Number: CA-PFIZER INC-202300186273

PATIENT
  Age: 34 Year
  Sex: Male

DRUGS (2)
  1. ABRILADA [Suspect]
     Active Substance: ADALIMUMAB-AFZB
     Indication: Ankylosing spondylitis
     Dosage: 40 MG, EVERY 2 WEEKS (PREFILLED PEN)
     Route: 058
     Dates: start: 20230202, end: 20230202
  2. NAPROXEN [Concomitant]
     Active Substance: NAPROXEN
     Dosage: 500 MG, 2X/DAY
     Route: 065
     Dates: start: 2017

REACTIONS (13)
  - Abdominal hernia [Not Recovered/Not Resolved]
  - Cluster headache [Recovered/Resolved]
  - Lymphadenopathy [Unknown]
  - Nausea [Recovered/Resolved]
  - Dizziness [Unknown]
  - Fatigue [Unknown]
  - Vertigo [Unknown]
  - Axillary pain [Unknown]
  - Oral herpes [Unknown]
  - Musculoskeletal discomfort [Not Recovered/Not Resolved]
  - Viral infection [Unknown]
  - Arthritis [Not Recovered/Not Resolved]
  - Ligament rupture [Not Recovered/Not Resolved]

NARRATIVE: CASE EVENT DATE: 20230101
